FAERS Safety Report 5506697-7 (Version None)
Quarter: 2007Q4

REPORT INFORMATION
  Report Type: 
  Country: None (occurrence: None)
  Receive Date: 20071105
  Receipt Date: 20071024
  Transmission Date: 20080405
  Serious: Yes (Hospitalization)
  Sender: FDA-Public Use
  Company Number: US-BRISTOL-MYERS SQUIBB COMPANY-13955125

PATIENT
  Age: 68 Year
  Sex: Female
  Weight: 54 kg

DRUGS (4)
  1. CETUXIMAB [Suspect]
     Indication: NON-SMALL CELL LUNG CANCER
     Dosage: 13-JAN-2007- 400 MG/M2 ON DAY ONE, WEEK 1 ONLY, THEN 250 MG/M2 OVER 60 MINUTES WEEKLY FOR 6 WEEKS.
     Route: 042
     Dates: start: 20070214, end: 20070214
  2. CARBOPLATIN [Suspect]
     Indication: NON-SMALL CELL LUNG CANCER
     Dosage: FIRST COURSE WAS ON 13-JAN-2007.
     Route: 042
     Dates: start: 20070214, end: 20070214
  3. PEMETREXED DISODIUM [Suspect]
     Indication: NON-SMALL CELL LUNG CANCER
     Dosage: 500 MG/M2 ON DAY 1X4 CYCLES. FIRST COURSE 13-JAN-2007.
     Route: 042
     Dates: start: 20070214, end: 20070214
  4. RADIATION THERAPY [Suspect]
     Indication: NON-SMALL CELL LUNG CANCER
     Dosage: DOSAGE FORM EQUALS GY.
     Dates: end: 20070219

REACTIONS (1)
  - DEHYDRATION [None]
